FAERS Safety Report 9808191 (Version 2)
Quarter: 2014Q1

REPORT INFORMATION
  Report Type: Spontaneous
  Country: US (occurrence: US)
  Receive Date: 20140110
  Receipt Date: 20140210
  Transmission Date: 20141002
  Serious: No
  Sender: FDA-Public Use
  Company Number: US-TEVA-455345USA

PATIENT
  Sex: Female
  Weight: 71.73 kg

DRUGS (4)
  1. PROAIR HFA [Suspect]
     Indication: DYSPNOEA
     Dates: start: 2007
  2. PROAIR HFA [Suspect]
     Indication: WHEEZING
  3. PANTOPRAZOLE [Concomitant]
     Indication: GASTROOESOPHAGEAL REFLUX DISEASE
  4. OXYGEN [Concomitant]
     Indication: CHRONIC OBSTRUCTIVE PULMONARY DISEASE
     Dosage: 24 HOURS A DAY

REACTIONS (2)
  - Dyspnoea [Recovered/Resolved]
  - Tinnitus [Unknown]
